FAERS Safety Report 9548203 (Version 3)
Quarter: 2013Q4

REPORT INFORMATION
  Report Type: Spontaneous
  Country: IT (occurrence: IT)
  Receive Date: 20130924
  Receipt Date: 20131022
  Transmission Date: 20140711
  Serious: Yes (Hospitalization)
  Sender: FDA-Public Use
  Company Number: IT-PFIZER INC-2013251495

PATIENT
  Age: 49 Year
  Sex: Female

DRUGS (1)
  1. XANAX [Suspect]
     Indication: DRUG ABUSE
     Dosage: 2.5 G, SINGLE
     Route: 048
     Dates: start: 20130808, end: 20130808

REACTIONS (4)
  - Off label use [Recovered/Resolved]
  - Drug abuse [Recovered/Resolved]
  - Snoring [Recovered/Resolved]
  - Sopor [Recovered/Resolved]
